FAERS Safety Report 6277973-8 (Version None)
Quarter: 2009Q3

REPORT INFORMATION
  Report Type: 
  Country: None (occurrence: None)
  Receive Date: 20090720
  Receipt Date: 20090708
  Transmission Date: 20100115
  Serious: Yes (Hospitalization)
  Sender: FDA-Public Use
  Company Number: 8048936

PATIENT

DRUGS (1)
  1. CDP870 [Suspect]
     Indication: CROHN'S DISEASE
     Dosage: SC
     Route: 058

REACTIONS (1)
  - ABDOMINAL ABSCESS [None]
